FAERS Safety Report 21004489 (Version 1)
Quarter: 2022Q2

REPORT INFORMATION
  Report Type: Spontaneous
  Country: US (occurrence: None)
  Receive Date: 20220624
  Receipt Date: 20220624
  Transmission Date: 20220721
  Serious: Yes (Other)
  Sender: FDA-Public Use
  Company Number: US-Hikma Pharmaceuticals USA Inc.-US-H14001-20-01028

PATIENT
  Age: 45 Year
  Sex: Male

DRUGS (1)
  1. PREDNISONE [Suspect]
     Active Substance: PREDNISONE
     Indication: Mesenteritis
     Dosage: UNKNOWN
     Route: 065

REACTIONS (4)
  - Non-alcoholic steatohepatitis [Unknown]
  - Osteoporosis [Unknown]
  - Cataract [Unknown]
  - Type 2 diabetes mellitus [Unknown]
